FAERS Safety Report 8971648 (Version 1)
Quarter: 2012Q4

REPORT INFORMATION
  Report Type: 
  Country: US (occurrence: US)
  Receive Date: 20121217
  Receipt Date: 20121217
  Transmission Date: 20130627
  Serious: Yes (Other)
  Sender: FDA-Public Use
  Company Number: US-TEVA-375232USA

PATIENT
  Age: 58 Year
  Sex: Female

DRUGS (3)
  1. COPAXONE [Suspect]
     Indication: MULTIPLE SCLEROSIS
     Dates: start: 200207, end: 201207
  2. MEDROL [Concomitant]
     Dosage: Intermittent
     Dates: start: 2002
  3. PREDNISONE [Concomitant]
     Dosage: Intermittent
     Dates: start: 2002

REACTIONS (1)
  - Anaphylactic reaction [Unknown]
